FAERS Safety Report 8721892 (Version 2)
Quarter: 2012Q4

REPORT INFORMATION
  Report Type: Spontaneous
  Country: US (occurrence: None)
  Receive Date: 20120727
  Receipt Date: 20120813
  Transmission Date: 20130627
  Serious: Yes (Death, Other)
  Sender: FDA-Public Use
  Company Number: TPA2012A03697

PATIENT
  Age: 79 Year
  Sex: Male
  Weight: 79.38 kg

DRUGS (5)
  1. ACTOS [Suspect]
     Indication: TYPE 2 DIABETES MELLITUS
     Dates: start: 200901, end: 200903
  2. ACTOS [Suspect]
     Indication: TYPE 2 DIABETES MELLITUS
     Dates: start: 200904, end: 201004
  3. ROSIGLITAZONE [Concomitant]
  4. INSULIN GLARGINE [Concomitant]
  5. SITAGLIPTIN PHOSPHATE [Concomitant]

REACTIONS (1)
  - BLADDER CANCER [None]
